FAERS Safety Report 16028360 (Version 1)
Quarter: 2019Q1

REPORT INFORMATION
  Report Type: Report from Study
  Country: AT (occurrence: AT)
  Receive Date: 20190304
  Receipt Date: 20190304
  Transmission Date: 20190418
  Serious: Yes (Death, Other)
  Sender: FDA-Public Use
  Company Number: AT-ROCHE-2270435

PATIENT

DRUGS (5)
  1. OMBITASVIR [Suspect]
     Active Substance: OMBITASVIR
     Indication: HEPATITIS C
     Route: 065
  2. PARITAPREVIR [Suspect]
     Active Substance: PARITAPREVIR
     Indication: HEPATITIS C
     Route: 065
  3. RITONAVIR. [Suspect]
     Active Substance: RITONAVIR
     Indication: HEPATITIS C
     Route: 065
  4. DASABUVIR [Suspect]
     Active Substance: DASABUVIR
     Indication: HEPATITIS C
     Route: 065
  5. RIBAVIRIN. [Suspect]
     Active Substance: RIBAVIRIN
     Indication: HEPATITIS C
     Route: 065

REACTIONS (25)
  - Vomiting [Unknown]
  - Oesophageal varices haemorrhage [Fatal]
  - Overdose [Fatal]
  - Chest wall abscess [Fatal]
  - Jaundice [Unknown]
  - Aspartate aminotransferase increased [Unknown]
  - Haemoglobin decreased [Unknown]
  - Creatinine renal clearance decreased [Unknown]
  - Rash [Unknown]
  - Cardiopulmonary failure [Fatal]
  - Gastrointestinal haemorrhage [Fatal]
  - Carotid aneurysm rupture [Fatal]
  - Chronic kidney disease [Fatal]
  - Hepatocellular carcinoma [Unknown]
  - Alanine aminotransferase increased [Unknown]
  - Cardiac failure [Fatal]
  - Hepatic failure [Fatal]
  - Sepsis [Fatal]
  - Anaemia [Unknown]
  - Nausea [Unknown]
  - Fatigue [Unknown]
  - Myocardial infarction [Fatal]
  - Hepatic cirrhosis [Fatal]
  - Pyonephrosis [Fatal]
  - Sudden death [Fatal]
